FAERS Safety Report 6733766-6 (Version None)
Quarter: 2010Q2

REPORT INFORMATION
  Report Type: 
  Country: None (occurrence: None)
  Receive Date: 20100520
  Receipt Date: 20100517
  Transmission Date: 20101027
  Serious: Yes (Other)
  Sender: FDA-Public Use
  Company Number: PHHY2010US21929

PATIENT
  Age: 18 Year
  Sex: Male

DRUGS (1)
  1. TRILEPTAL [Suspect]

REACTIONS (3)
  - BLOOD ALDOSTERONE DECREASED [None]
  - HYPONATRAEMIA [None]
  - RENIN DECREASED [None]
